FAERS Safety Report 4562407-1 (Version None)
Quarter: 2005Q1

REPORT INFORMATION
  Report Type: 
  Country: None (occurrence: None)
  Receive Date: 20050127
  Receipt Date: 20040902
  Transmission Date: 20050727
  Serious: No
  Sender: FDA-Public Use
  Company Number: US-BRISTOL-MYERS SQUIBB COMPANY-12708350

PATIENT

DRUGS (2)
  1. KENALOG [Suspect]
     Route: 008
  2. LIDOCAINE [Concomitant]

REACTIONS (1)
  - INJECTION SITE SWELLING [None]
